FAERS Safety Report 23416811 (Version 3)
Quarter: 2024Q2

REPORT INFORMATION
  Report Type: Spontaneous
  Country: US (occurrence: US)
  Receive Date: 20240118
  Receipt Date: 20240429
  Transmission Date: 20240716
  Serious: Yes (Other)
  Sender: FDA-Public Use
  Company Number: US-PFIZER INC-202400017359

PATIENT
  Age: 40 Year
  Sex: Female
  Weight: 53.98 kg

DRUGS (2)
  1. OXBRYTA [Suspect]
     Active Substance: VOXELOTOR
     Indication: Sickle cell disease
     Dosage: 1500 MG (3 TABLETS OF 500 MG), 1X/DAY
     Route: 048
     Dates: start: 20231226
  2. OXBRYTA [Suspect]
     Active Substance: VOXELOTOR
     Dosage: 500 MG AND TOOK IT THREE TABLETS AT ONE TIME ONCE A DAY BY MOUTH
     Route: 048
     Dates: start: 202401, end: 20240229

REACTIONS (5)
  - Sickle cell anaemia with crisis [Recovering/Resolving]
  - Streptobacillus infection [Recovered/Resolved]
  - Abdominal discomfort [Recovering/Resolving]
  - Abdominal pain upper [Recovered/Resolved]
  - Diarrhoea [Recovered/Resolved]

NARRATIVE: CASE EVENT DATE: 20240101
